FAERS Safety Report 9899338 (Version 2)
Quarter: 2014Q1

REPORT INFORMATION
  Report Type: Report from Study
  Country: US (occurrence: US)
  Receive Date: 20140214
  Receipt Date: 20140214
  Transmission Date: 20141002
  Serious: Yes (Life-Threatening, Hospitalization, Other)
  Sender: FDA-Public Use
  Company Number: US-SA-CLOF-1002755

PATIENT
  Age: 46 Year
  Sex: Female
  Weight: 75.9 kg

DRUGS (26)
  1. CLOFARABINE [Suspect]
     Indication: BONE MARROW CONDITIONING REGIMEN
     Dosage: 74 MG, QD
     Route: 042
     Dates: start: 20130725, end: 20130729
  2. BUSULFAN [Suspect]
     Indication: BONE MARROW CONDITIONING REGIMEN
     Dosage: 205 MG, UNK
     Route: 042
     Dates: start: 20130726, end: 20130729
  3. ACICLOVIR [Concomitant]
     Indication: PROPHYLAXIS
     Dosage: 200 MG IN 5 % DEXTROSE, BID
     Route: 042
  4. ACICLOVIR [Concomitant]
     Indication: PROPHYLAXIS
     Dosage: 800 MG, BID (TABLET)
     Route: 048
  5. ERTAPENEM SODIUM [Concomitant]
     Indication: PRODUCT USED FOR UNKNOWN INDICATION
     Dosage: 1 G, QD (THROUGH VEIN)
     Route: 065
  6. LORAZEPAM [Concomitant]
     Indication: NAUSEA
     Dosage: 0.5 MG, PRN (1-2 TAB EVERY 6 HOURS AS NEEDED)
     Route: 048
  7. FLUCONAZOLE [Concomitant]
     Indication: PRODUCT USED FOR UNKNOWN INDICATION
     Dosage: 2 DF, QD
     Route: 048
  8. ZOSYN [Concomitant]
     Indication: PRODUCT USED FOR UNKNOWN INDICATION
     Dosage: 4.5 G IN 100 ML ISO-OSMOTIC, UNK
     Route: 042
  9. TACROLIMUS [Concomitant]
     Indication: PROPHYLAXIS
     Dosage: 1.3 MG IN DEXTROSE 5 % 250 ML, UNK
     Route: 042
  10. DAPTOMYCIN [Concomitant]
     Indication: PRODUCT USED FOR UNKNOWN INDICATION
     Dosage: 455 MG IN 0.9% SODIUM CHLORIDE, UNK
     Route: 042
     Dates: start: 200908
  11. URSODEOXYCHOLIC ACID [Concomitant]
     Indication: PROPHYLAXIS AGAINST GRAFT VERSUS HOST DISEASE
     Dosage: UNK
     Route: 065
  12. URSODEOXYCHOLIC ACID [Concomitant]
     Indication: PROPHYLAXIS
     Dosage: UNK
     Route: 065
  13. LEVOFLOXACIN [Concomitant]
     Indication: PRODUCT USED FOR UNKNOWN INDICATION
     Dosage: 750 MG, QD
     Route: 042
  14. METHOTREXATE [Concomitant]
     Indication: PRODUCT USED FOR UNKNOWN INDICATION
     Dosage: UNK (ON DAY 1, 3 , 6)
     Route: 065
  15. MICAFUNGIN [Concomitant]
     Indication: PROPHYLAXIS
     Dosage: 50 MG, QD
     Route: 042
  16. EPINEPHRINE [Concomitant]
     Indication: PRODUCT USED FOR UNKNOWN INDICATION
     Dosage: UNK (TWICE)
     Route: 065
  17. MIDAZOLAM [Concomitant]
     Indication: PRODUCT USED FOR UNKNOWN INDICATION
     Dosage: UNK
     Route: 065
  18. PIPERACILLIN [Concomitant]
     Indication: PRODUCT USED FOR UNKNOWN INDICATION
     Dosage: UNK
     Route: 065
  19. FENTANYL [Concomitant]
     Indication: PRODUCT USED FOR UNKNOWN INDICATION
     Dosage: UNK
     Route: 065
  20. DAPTOMYCIN [Concomitant]
     Indication: PRODUCT USED FOR UNKNOWN INDICATION
     Dosage: UNK
     Route: 065
  21. MORPHINE [Concomitant]
     Indication: PRODUCT USED FOR UNKNOWN INDICATION
     Dosage: UNK
     Route: 065
  22. PARACETAMOL [Concomitant]
     Indication: PRODUCT USED FOR UNKNOWN INDICATION
     Dosage: UNK
     Route: 065
  23. ACICLOVIR [Concomitant]
     Indication: PRODUCT USED FOR UNKNOWN INDICATION
     Dosage: UNK
     Route: 065
  24. NALOXONE [Concomitant]
     Indication: PRODUCT USED FOR UNKNOWN INDICATION
     Dosage: UNK
     Route: 065
  25. ALL OTHER THERAPEUTIC PRODUCTS [Concomitant]
     Indication: PRODUCT USED FOR UNKNOWN INDICATION
     Dosage: UNK
     Route: 065
  26. DIPHENHYDRAMINE [Concomitant]
     Indication: PRODUCT USED FOR UNKNOWN INDICATION
     Dosage: UNK
     Route: 065

REACTIONS (9)
  - Mucosal haemorrhage [Recovered/Resolved]
  - Respiratory failure [Recovered/Resolved]
  - Palmar-plantar erythrodysaesthesia syndrome [Not Recovered/Not Resolved]
  - Staphylococcal sepsis [Recovered/Resolved]
  - Pancytopenia [Recovered/Resolved]
  - Capillary leak syndrome [Unknown]
  - Pulseless electrical activity [Recovered/Resolved]
  - Pleural effusion [Recovered/Resolved]
  - Pneumonia [Recovered/Resolved]
